FAERS Safety Report 12139536 (Version 3)
Quarter: 2017Q1

REPORT INFORMATION
  Report Type: Report from Study
  Country: DE (occurrence: DE)
  Receive Date: 20160303
  Receipt Date: 20170213
  Transmission Date: 20170428
  Serious: Yes (Hospitalization)
  Sender: FDA-Public Use
  Company Number: DE-ROCHE-1719983

PATIENT
  Age: 54 Year
  Sex: Male

DRUGS (7)
  1. TOCILIZUMAB [Suspect]
     Active Substance: TOCILIZUMAB
     Indication: RHEUMATOID ARTHRITIS
     Route: 058
  2. TILIDIN [Concomitant]
     Active Substance: NALOXONE HYDROCHLORIDE\TILIDINE HYDROCHLORIDE
  3. NOVAMINSULFON [Concomitant]
     Active Substance: METAMIZOLE
  4. TOCILIZUMAB [Suspect]
     Active Substance: TOCILIZUMAB
     Route: 058
     Dates: start: 201507, end: 201602
  5. PREDNISOLON [Concomitant]
     Active Substance: PREDNISOLONE
  6. IBUPROFEN. [Concomitant]
     Active Substance: IBUPROFEN
  7. PANTOZOL [Concomitant]
     Active Substance: PANTOPRAZOLE SODIUM

REACTIONS (2)
  - Rotator cuff syndrome [Recovered/Resolved]
  - Bursitis [Unknown]

NARRATIVE: CASE EVENT DATE: 20151009
